FAERS Safety Report 23690915 (Version 1)
Quarter: 2024Q2

REPORT INFORMATION
  Report Type: Spontaneous
  Country: US (occurrence: US)
  Receive Date: 20240401
  Receipt Date: 20240401
  Transmission Date: 20240717
  Serious: No
  Sender: FDA-Public Use
  Company Number: US-TEVA-VS-3154464

PATIENT
  Age: 34 Year
  Sex: Female
  Weight: 90.718 kg

DRUGS (11)
  1. QUETIAPINE [Suspect]
     Active Substance: QUETIAPINE
     Indication: Borderline personality disorder
     Route: 065
     Dates: start: 20220213, end: 20220220
  2. DEXTROAMPHET SACCHARAT, AMPHET ASPARTATE, DEXTROAMPHET SULFATE AND AMP [Concomitant]
     Active Substance: AMPHETAMINE ASPARTATE\AMPHETAMINE ASPARTATE MONOHYDRATE\AMPHETAMINE SULFATE\DEXTROAMPHETAMINE SACCHA
     Route: 065
     Dates: start: 20220123
  3. DEXTROAMPHET SACCHARAT, AMPHET ASPARTATE, DEXTROAMPHET SULFATE AND AMP [Concomitant]
     Active Substance: AMPHETAMINE ASPARTATE\AMPHETAMINE ASPARTATE MONOHYDRATE\AMPHETAMINE SULFATE\DEXTROAMPHETAMINE SACCHA
     Route: 065
     Dates: start: 20220123
  4. LAMOTRIGINE [Concomitant]
     Active Substance: LAMOTRIGINE
     Route: 065
     Dates: start: 20220123
  5. DIAZEPAM [Concomitant]
     Active Substance: DIAZEPAM
     Route: 065
     Dates: start: 20220508
  6. CLONAZEPAM [Concomitant]
     Active Substance: CLONAZEPAM
     Route: 065
     Dates: start: 20220123, end: 20220403
  7. LORAZEPAM [Concomitant]
     Active Substance: LORAZEPAM
     Route: 065
     Dates: start: 20220213, end: 20220220
  8. MAGNESIUM [Concomitant]
     Active Substance: MAGNESIUM
     Route: 065
     Dates: start: 20220612
  9. ONDANSETRON [Concomitant]
     Active Substance: ONDANSETRON
     Route: 065
     Dates: start: 20220320
  10. VANCOMYCIN [Concomitant]
     Active Substance: VANCOMYCIN
     Route: 065
     Dates: start: 20220724
  11. FLUOXETINE [Concomitant]
     Active Substance: FLUOXETINE HYDROCHLORIDE
     Route: 065
     Dates: start: 20220123

REACTIONS (1)
  - Gestational hypertension [Unknown]

NARRATIVE: CASE EVENT DATE: 20221017
